FAERS Safety Report 4360137-2 (Version None)
Quarter: 2004Q2

REPORT INFORMATION
  Report Type: 
  Country: None (occurrence: None)
  Receive Date: 20040519
  Receipt Date: 20020124
  Transmission Date: 20050107
  Serious: Yes (Hospitalization)
  Sender: FDA-Public Use
  Company Number: 200210364FR

PATIENT
  Age: 78 Year
  Sex: Male
  Weight: 86 kg

DRUGS (8)
  1. ARAVA [Suspect]
     Indication: RHEUMATOID ARTHRITIS
     Route: 048
     Dates: start: 20001012, end: 20020409
  2. CORTANCYL [Suspect]
     Indication: RHEUMATOID ARTHRITIS
     Route: 048
  3. TOPALGIC [Concomitant]
     Indication: RHEUMATOID ARTHRITIS
     Route: 048
  4. SPECIAFOLDINE [Concomitant]
     Indication: HOMOCYSTINAEMIA
     Route: 048
  5. PREVISCAN [Concomitant]
     Indication: THROMBOPHLEBITIS PROPHYLAXIS
     Route: 048
  6. MOPRAL [Concomitant]
     Route: 048
  7. BECILAN [Concomitant]
     Indication: HOMOCYSTINAEMIA
  8. IDEOS [Concomitant]
     Route: 048

REACTIONS (9)
  - ANAEMIA [None]
  - ASTHENIA [None]
  - CONDITION AGGRAVATED [None]
  - DIFFICULTY IN WALKING [None]
  - FATIGUE [None]
  - NEURITIS [None]
  - PERIPHERAL SENSORIMOTOR NEUROPATHY [None]
  - POLYNEUROPATHY [None]
  - TUBERCULOSIS [None]
